FAERS Safety Report 18963961 (Version 1)
Quarter: 2021Q1

REPORT INFORMATION
  Report Type: Spontaneous
  Country: US (occurrence: US)
  Receive Date: 20210303
  Receipt Date: 20210303
  Transmission Date: 20210420
  Serious: No
  Sender: FDA-Public Use
  Company Number: US-AMNEAL PHARMACEUTICALS-2020-AMRX-00345

PATIENT
  Age: 67 Year
  Sex: Male

DRUGS (6)
  1. RYTARY [Suspect]
     Active Substance: CARBIDOPA\LEVODOPA
     Dosage: 48.75/195 MG, 1 CAPSULES, TID
     Route: 048
     Dates: start: 20200106, end: 2020
  2. RYTARY [Suspect]
     Active Substance: CARBIDOPA\LEVODOPA
     Dosage: 61.25/245 MG, 4 CAPSULES, DAILY
     Route: 048
  3. RYTARY [Suspect]
     Active Substance: CARBIDOPA\LEVODOPA
     Indication: PARKINSON^S DISEASE
     Dosage: 61.25/245 MG, 1 AND 1/2 CAPSULES, QID
     Route: 048
  4. RYTARY [Suspect]
     Active Substance: CARBIDOPA\LEVODOPA
     Dosage: 61.25/245 MG, 1 CAPSULES, TID
     Route: 048
  5. CARBIDOPA?LEVODOPA ER [Suspect]
     Active Substance: CARBIDOPA\LEVODOPA
     Indication: PARKINSON^S DISEASE
     Dosage: 1 AND 1/2 TABLET 4 TIMES A DAY
     Route: 065
  6. RYTARY [Suspect]
     Active Substance: CARBIDOPA\LEVODOPA
     Dosage: 48.75?195MG 1 CAPSULES, TID
     Route: 065
     Dates: start: 20200225

REACTIONS (4)
  - Feeling abnormal [Recovered/Resolved]
  - Product dose omission issue [Unknown]
  - Therapeutic response shortened [Recovered/Resolved]
  - Nightmare [Recovered/Resolved]

NARRATIVE: CASE EVENT DATE: 202001
